FAERS Safety Report 24250992 (Version 2)
Quarter: 2024Q3

REPORT INFORMATION
  Report Type: Spontaneous
  Country: US (occurrence: US)
  Receive Date: 20240826
  Receipt Date: 20240920
  Transmission Date: 20241017
  Serious: Yes (Other)
  Sender: ALKERMES
  Company Number: US-ALKERMES INC.-ALK-2024-002196

PATIENT
  Sex: Female

DRUGS (1)
  1. VIVITROL [Suspect]
     Active Substance: NALTREXONE
     Indication: Alcoholism
     Dosage: 380 MILLIGRAM, QMO
     Route: 030
     Dates: start: 20240705

REACTIONS (5)
  - Seizure [Recovered/Resolved]
  - Hypoacusis [Unknown]
  - Dizziness [Unknown]
  - Blood potassium decreased [Recovered/Resolved]
  - Diarrhoea [Recovered/Resolved]

NARRATIVE: CASE EVENT DATE: 20240101
